FAERS Safety Report 5861386-4 (Version None)
Quarter: 2008Q3

REPORT INFORMATION
  Report Type: 
  Country: None (occurrence: None)
  Receive Date: 20080827
  Receipt Date: 20080508
  Transmission Date: 20090109
  Serious: No
  Sender: FDA-Public Use
  Company Number: US-ABBOTT-08P-163-0450891-00

PATIENT
  Sex: Male
  Weight: 113.5 kg

DRUGS (8)
  1. COATED PDS [Suspect]
     Indication: BLOOD CHOLESTEROL INCREASED
     Dosage: 1-500MG TABLET EVERYDAY
     Route: 048
     Dates: start: 20080301, end: 20080401
  2. COATED PDS [Suspect]
     Dates: start: 20080401, end: 20080401
  3. ALLOPURINOL [Concomitant]
     Indication: GOUT
     Dosage: 90 MG EVERYDAY
     Route: 048
  4. AMLODIPINE [Concomitant]
     Indication: DRUG USE FOR UNKNOWN INDICATION
     Dosage: 10MG EVERYDAY
     Route: 048
  5. ENALAPRIL MALEATE [Concomitant]
     Indication: HYPERTENSION
     Dosage: 20MG EVERYDAY
     Route: 048
  6. GLIBENCLAMIDE [Concomitant]
     Indication: DIABETES MELLITUS
     Dosage: 5 MG EVERYDAY
     Route: 048
  7. METOPROLOL TARTRATE [Concomitant]
     Indication: HYPERTENSION
     Dosage: 25MG EVERYDAY
     Route: 048
  8. TINOLOL [Concomitant]
     Indication: GLAUCOMA
     Route: 047

REACTIONS (3)
  - FLUSHING [None]
  - PAIN IN EXTREMITY [None]
  - PARAESTHESIA [None]
